FAERS Safety Report 5527356-0 (Version None)
Quarter: 2007Q4

REPORT INFORMATION
  Report Type: 
  Country: None (occurrence: None)
  Receive Date: 20071128
  Receipt Date: 20071115
  Transmission Date: 20080405
  Serious: Yes (Hospitalization, Other)
  Sender: FDA-Public Use
  Company Number: FR-AVENTIS-200413951FR

PATIENT
  Age: 64 Year
  Sex: Female
  Weight: 57 kg

DRUGS (49)
  1. ARAVA [Suspect]
     Indication: BK VIRUS INFECTION
     Route: 048
     Dates: start: 20040123, end: 20040126
  2. ARAVA [Suspect]
     Route: 048
     Dates: start: 20040127, end: 20040130
  3. ARAVA [Suspect]
     Route: 048
     Dates: start: 20040131, end: 20040206
  4. ARAVA [Suspect]
     Route: 048
     Dates: start: 20040207, end: 20040212
  5. ARAVA [Suspect]
     Route: 048
     Dates: start: 20040207, end: 20040212
  6. ARAVA [Suspect]
     Route: 048
     Dates: start: 20040213, end: 20040228
  7. ARAVA [Suspect]
     Route: 048
     Dates: start: 20040229
  8. ARAVA [Suspect]
     Route: 048
     Dates: end: 20050101
  9. DIANTALVIC [Suspect]
     Route: 048
     Dates: start: 20040117, end: 20040129
  10. DIANTALVIC [Suspect]
     Route: 048
     Dates: start: 20040130, end: 20040201
  11. OFLOCET                            /00731801/ [Suspect]
     Dates: start: 20040121, end: 20040101
  12. OFLOCET                            /00731801/ [Suspect]
     Dates: start: 20040206, end: 20040201
  13. PROGRAF [Concomitant]
     Route: 048
     Dates: start: 20031110, end: 20040219
  14. PROGRAF [Concomitant]
     Route: 048
     Dates: start: 20040220, end: 20040824
  15. PROGRAF [Concomitant]
     Route: 048
     Dates: start: 20040825
  16. CORTANCYL [Concomitant]
     Route: 048
     Dates: start: 20031114
  17. CORDARONE [Concomitant]
     Route: 048
     Dates: start: 20031217
  18. AMLOR [Concomitant]
     Route: 048
     Dates: start: 20010106, end: 20040129
  19. AMLOR [Concomitant]
     Route: 048
     Dates: start: 20040130, end: 20040219
  20. AMLOR [Concomitant]
     Route: 048
     Dates: start: 20040220, end: 20040101
  21. EUPRESSYL                          /00631801/ [Concomitant]
     Route: 048
     Dates: start: 20040109, end: 20040101
  22. EUPRESSYL                          /00631801/ [Concomitant]
     Route: 048
     Dates: start: 20040331
  23. EUTHYRAL [Concomitant]
     Route: 048
     Dates: start: 20040106
  24. TRIFLUCAN [Concomitant]
     Route: 048
     Dates: start: 20040109, end: 20040101
  25. BACTRIM [Concomitant]
     Route: 048
     Dates: start: 20040126, end: 20040101
  26. ZELITREX [Concomitant]
     Dates: start: 20040117, end: 20040101
  27. PROZAC [Concomitant]
     Route: 048
     Dates: start: 20040117, end: 20040201
  28. MOPRAL [Concomitant]
     Route: 048
     Dates: start: 20031217, end: 20040205
  29. MOPRAL [Concomitant]
     Route: 048
     Dates: start: 20040206
  30. CALCIPARINE [Concomitant]
     Route: 058
     Dates: start: 20040106, end: 20040101
  31. CALCIPARINE [Concomitant]
     Route: 058
     Dates: start: 20040825
  32. NEORECORMON [Concomitant]
     Dates: start: 20040117
  33. PERFALGAN [Concomitant]
     Dates: start: 20040130
  34. RYTHMOL                            /00546302/ [Concomitant]
     Route: 048
     Dates: start: 20040129, end: 20040220
  35. METOCLOPRAMIDE HCL [Concomitant]
     Route: 048
     Dates: start: 20040130, end: 20040206
  36. DEBRIDAT                           /00465201/ [Concomitant]
     Dates: start: 20040128
  37. AUGMENTIN '125' [Concomitant]
     Dates: start: 20040203
  38. DUPHALAC                           /00163401/ [Concomitant]
     Dates: start: 20040203
  39. IMOVANE [Concomitant]
     Dates: start: 20040203
  40. EFFEXOR [Concomitant]
     Dates: start: 20040212
  41. DAFALGAN                           /00020001/ [Concomitant]
     Route: 048
     Dates: start: 20040212
  42. PREVISCAN                          /00789001/ [Concomitant]
     Route: 048
     Dates: start: 20040331
  43. MYOLASTAN [Concomitant]
     Dates: start: 20040331
  44. SEROPRAM [Concomitant]
     Route: 048
     Dates: start: 20040331
  45. LARGACTIL                          /00011901/ [Concomitant]
     Dates: start: 20040331
  46. TAHOR [Concomitant]
     Route: 048
     Dates: start: 20040225, end: 20040824
  47. TAHOR [Concomitant]
     Route: 048
     Dates: start: 20040825
  48. OROKEN [Concomitant]
     Dates: start: 20040825
  49. ROCEPHIN [Concomitant]
     Dates: start: 20040825

REACTIONS (8)
  - ANAEMIA [None]
  - CYTOMEGALOVIRUS INFECTION [None]
  - GAMMA-GLUTAMYLTRANSFERASE INCREASED [None]
  - HYPERTENSION [None]
  - PYELONEPHRITIS ACUTE [None]
  - RENAL FAILURE [None]
  - THROMBOCYTOPENIA [None]
  - URETERIC STENOSIS [None]
